FAERS Safety Report 9285384 (Version 1)
Quarter: 2013Q2

REPORT INFORMATION
  Report Type: Spontaneous
  Country: US (occurrence: US)
  Receive Date: 20130513
  Receipt Date: 20130513
  Transmission Date: 20140414
  Serious: Yes (Other)
  Sender: FDA-Public Use
  Company Number: US-JNJFOC-20130500235

PATIENT
  Sex: Male
  Weight: 70.31 kg

DRUGS (4)
  1. INVEGA [Suspect]
     Indication: ABNORMAL BEHAVIOUR
     Route: 048
     Dates: start: 20130220
  2. INVEGA [Suspect]
     Indication: ABNORMAL BEHAVIOUR
     Route: 048
     Dates: start: 201209, end: 20130220
  3. CIPRALEX [Concomitant]
     Indication: ANXIETY
     Route: 048
     Dates: start: 201209
  4. BEDRANOL [Concomitant]
     Indication: ANXIETY
     Route: 048
     Dates: start: 201209

REACTIONS (1)
  - Neuroleptic malignant syndrome [Recovered/Resolved]
